FAERS Safety Report 15726780 (Version 1)
Quarter: 2018Q4

REPORT INFORMATION
  Report Type: Report from Study
  Country: None (occurrence: BR)
  Receive Date: 20181217
  Receipt Date: 20181217
  Transmission Date: 20190205
  Serious: Yes (Hospitalization, Other)
  Sender: FDA-Public Use
  Company Number: BR-ABBVIE-18K-020-2589556-00

PATIENT
  Age: 55 Year
  Sex: Female
  Weight: 94 kg

DRUGS (8)
  1. DIPYRONE [Suspect]
     Active Substance: DIPYRONE
     Indication: PAIN
     Route: 042
  2. TYLEX (PARACETAMOL/CODEINE PHOSPHATE) [Suspect]
     Active Substance: ACETAMINOPHEN\CODEINE PHOSPHATE
     Indication: PAIN
     Route: 065
  3. HUMIRA [Suspect]
     Active Substance: ADALIMUMAB
     Route: 058
     Dates: start: 2018
  4. AZATHIOPRINE. [Concomitant]
     Active Substance: AZATHIOPRINE
     Indication: CROHN^S DISEASE
     Route: 065
  5. HUMIRA [Suspect]
     Active Substance: ADALIMUMAB
     Indication: ANKYLOSING SPONDYLITIS
     Route: 058
     Dates: start: 20110726
  6. DIPYRONE [Suspect]
     Active Substance: DIPYRONE
     Route: 065
  7. CALCIUM [Concomitant]
     Active Substance: CALCIUM
     Indication: ANKYLOSING SPONDYLITIS
  8. CALCIUM [Concomitant]
     Active Substance: CALCIUM
     Indication: BONE DISORDER

REACTIONS (11)
  - Complication associated with device [Unknown]
  - Malaise [Recovered/Resolved]
  - Constipation [Recovered/Resolved]
  - Umbilical hernia [Recovered/Resolved]
  - Cerebral ischaemia [Recovered/Resolved]
  - Procedural pain [Recovered/Resolved]
  - Patient-device incompatibility [Unknown]
  - Mobility decreased [Unknown]
  - Dizziness [Recovered/Resolved]
  - Dental implantation [Unknown]
  - Post procedural swelling [Recovered/Resolved]

NARRATIVE: CASE EVENT DATE: 20130208
